FAERS Safety Report 9246328 (Version 1)
Quarter: 2013Q2

REPORT INFORMATION
  Report Type: Spontaneous
  Country: JP (occurrence: JP)
  Receive Date: 20130422
  Receipt Date: 20130422
  Transmission Date: 20140414
  Serious: Yes (Death, Other)
  Sender: FDA-Public Use
  Company Number: PHHY2013JP038990

PATIENT
  Sex: 0

DRUGS (2)
  1. DIAZEPAM [Suspect]
     Indication: ANAESTHESIA
     Route: 064
  2. FENTANYL [Suspect]
     Indication: ANAESTHESIA
     Route: 064

REACTIONS (3)
  - Cardiac arrest [Fatal]
  - Hydrops foetalis [Unknown]
  - Foetal exposure during pregnancy [Unknown]
